FAERS Safety Report 6901682-2 (Version None)
Quarter: 2010Q3

REPORT INFORMATION
  Report Type: 
  Country: None (occurrence: None)
  Receive Date: 20100802
  Receipt Date: 20100802
  Transmission Date: 20110219
  Serious: No
  Sender: FDA-Public Use
  Company Number: None

PATIENT
  Sex: Female
  Weight: 52.1637 kg

DRUGS (1)
  1. ACCUTANE [Suspect]

REACTIONS (2)
  - INFLAMMATORY BOWEL DISEASE [None]
  - QUALITY OF LIFE DECREASED [None]
